FAERS Safety Report 17750554 (Version 1)
Quarter: 2020Q2

REPORT INFORMATION
  Report Type: Spontaneous
  Country: US (occurrence: US)
  Receive Date: 20200506
  Receipt Date: 20200506
  Transmission Date: 20200714
  Serious: Yes (Hospitalization)
  Sender: FDA-Public Use
  Company Number: None

PATIENT
  Age: 58 Year
  Sex: Male
  Weight: 108.6 kg

DRUGS (2)
  1. ZYTIGA [Suspect]
     Active Substance: ABIRATERONE ACETATE
     Indication: PROSTATE CANCER METASTATIC
     Route: 048
     Dates: start: 20190505, end: 20190519
  2. PREDNISONE. [Concomitant]
     Active Substance: PREDNISONE
     Dates: start: 20190804

REACTIONS (2)
  - Hyperosmolar state [None]
  - Blood sodium decreased [None]

NARRATIVE: CASE EVENT DATE: 20190819
